FAERS Safety Report 10525837 (Version 2)
Quarter: 2014Q4

REPORT INFORMATION
  Report Type: Spontaneous
  Country: DE (occurrence: DE)
  Receive Date: 20141017
  Receipt Date: 20141017
  Transmission Date: 20150528
  Serious: Yes (Life-Threatening, Hospitalization, Disabling)
  Sender: FDA-Public Use
  Company Number: DE-ABBVIE-11P-062-0848784-00

PATIENT
  Age: 69 Year
  Sex: Female
  Weight: 80 kg

DRUGS (9)
  1. TOREM [Concomitant]
     Active Substance: TORSEMIDE
     Indication: OEDEMA
     Route: 065
  2. METHIONIN [Concomitant]
     Indication: INCONTINENCE
     Route: 065
  3. PARKINSON MEDICATIONS [Concomitant]
     Indication: PRODUCT USED FOR UNKNOWN INDICATION
     Route: 048
  4. MOTILIN [Concomitant]
     Indication: CONSTIPATION
     Route: 065
  5. DUODOPA GEL [Suspect]
     Active Substance: CARBIDOPA\LEVODOPA
     Dosage: DAILY DOSE 2940MG
     Route: 065
     Dates: start: 20080827, end: 201105
  6. REMERGIL [Concomitant]
     Active Substance: MIRTAZAPINE
     Indication: DEPRESSION
     Route: 065
  7. DUODOPA GEL [Suspect]
     Active Substance: CARBIDOPA\LEVODOPA
     Indication: PARKINSON^S DISEASE
     Dosage: JEJUNAL, 11 ML AT 6:00
     Route: 065
     Dates: start: 20080827, end: 201105
  8. DUODOPA GEL [Suspect]
     Active Substance: CARBIDOPA\LEVODOPA
     Dosage: JEJUNAL, 5 ML FROM 10:00 PM TO 6:00 AM
     Route: 065
     Dates: start: 20080827, end: 201105
  9. DUODOPA GEL [Suspect]
     Active Substance: CARBIDOPA\LEVODOPA
     Dosage: JEJUNAL, 6 ML FROM 6:00 AM TO 10:00 PM
     Route: 065
     Dates: start: 20080827, end: 201105

REACTIONS (1)
  - Polyneuropathy [Recovering/Resolving]

NARRATIVE: CASE EVENT DATE: 20101001
